FAERS Safety Report 25676735 (Version 1)
Quarter: 2025Q3

REPORT INFORMATION
  Report Type: Spontaneous
  Country: US (occurrence: None)
  Receive Date: 20250812
  Receipt Date: 20250812
  Transmission Date: 20251021
  Serious: No
  Sender: FDA-CTU
  Company Number: None

PATIENT
  Sex: Female

DRUGS (13)
  1. ZOLEDRONIC ACID [Suspect]
     Active Substance: ZOLEDRONIC ACID
     Dates: start: 20250731
  2. Aspirin (81mg) [Concomitant]
  3. Cholecalciferol (50mcg) [Concomitant]
  4. Trulicity (Dulaglutide) (3mg/0.5ml) [Concomitant]
  5. Novolog 70/30 (UAD) [Concomitant]
  6. Lansoprazole (30mg) [Concomitant]
  7. Levothyroxine (100mcg) [Concomitant]
  8. Magnesium Gluconate (500mg tablet) [Concomitant]
  9. Metformin (1000mg) [Concomitant]
  10. Potassium gluconate (550mg) [Concomitant]
  11. Pregabalin (150mg) [Concomitant]
  12. Simvastatin (20mg) [Concomitant]
  13. Valsartan (160mg) [Concomitant]

REACTIONS (4)
  - Headache [None]
  - Abdominal pain upper [None]
  - Stomatitis [None]
  - Hypophagia [None]

NARRATIVE: CASE EVENT DATE: 20250804
